FAERS Safety Report 19073579 (Version 7)
Quarter: 2021Q3

REPORT INFORMATION
  Report Type: Spontaneous
  Country: CA (occurrence: CA)
  Receive Date: 20210330
  Receipt Date: 20210915
  Transmission Date: 20211014
  Serious: Yes (Other)
  Sender: FDA-Public Use
  Company Number: CA-PFIZER INC-2021319056

PATIENT
  Age: 67 Year
  Sex: Female
  Weight: 88.6 kg

DRUGS (6)
  1. XELJANZ [Suspect]
     Active Substance: TOFACITINIB CITRATE
     Indication: COLITIS ULCERATIVE
     Dosage: 10 MG, 2X/DAY
     Route: 048
     Dates: start: 20210129, end: 20210226
  2. XELJANZ [Suspect]
     Active Substance: TOFACITINIB CITRATE
     Dosage: 10 MG, 1X/DAY
     Route: 048
     Dates: start: 20210302, end: 2021
  3. XELJANZ [Suspect]
     Active Substance: TOFACITINIB CITRATE
     Dosage: 5 MG, 1X/DAY
     Route: 048
     Dates: start: 2021, end: 2021
  4. ASACOL [Concomitant]
     Active Substance: MESALAMINE
     Dosage: UNK
  5. PREDNISONE. [Concomitant]
     Active Substance: PREDNISONE
     Dosage: UNK
  6. XELJANZ [Suspect]
     Active Substance: TOFACITINIB CITRATE
     Dosage: 5 MG, 1X/DAY
     Route: 048
     Dates: start: 2021, end: 20210825

REACTIONS (12)
  - Abdominal distension [Unknown]
  - Drug ineffective [Unknown]
  - Off label use [Unknown]
  - Depression [Recovering/Resolving]
  - Headache [Recovering/Resolving]
  - Colitis ulcerative [Unknown]
  - Dyspnoea [Unknown]
  - Illness [Unknown]
  - Vertigo [Recovering/Resolving]
  - Chest pain [Recovering/Resolving]
  - Intentional product use issue [Unknown]
  - Hallucination [Unknown]

NARRATIVE: CASE EVENT DATE: 2021
